FAERS Safety Report 7220554-X (Version None)
Quarter: 2011Q1

REPORT INFORMATION
  Report Type: 
  Country: None (occurrence: None)
  Receive Date: 20110111
  Receipt Date: 20101222
  Transmission Date: 20110831
  Serious: No
  Sender: FDA-Public Use
  Company Number: US-B.I. PHARMACEUTICALS,INC./RIDGEFIELD-2010-BP-15406BP

PATIENT
  Sex: Female

DRUGS (13)
  1. LIPITOR [Concomitant]
     Indication: BLOOD CHOLESTEROL INCREASED
     Dosage: 20 MG
     Route: 048
  2. METOPROLOL TARTRATE [Concomitant]
     Indication: HYPERTENSION
     Dosage: 200 MG
     Route: 048
  3. FOLIC ACID [Concomitant]
     Indication: ANAEMIA
     Dosage: 1 MG
     Route: 048
  4. PRADAXA [Suspect]
     Indication: ATRIAL FIBRILLATION
     Dosage: 300 MG
     Route: 048
     Dates: start: 20101217
  5. LEVOTHYROXINE SODIUM [Concomitant]
     Indication: HYPOTHYROIDISM
     Dosage: 112 MCG
     Route: 048
  6. IRON [Concomitant]
     Indication: ANAEMIA
     Dosage: 325 MG
     Route: 048
  7. ASPIRIN [Concomitant]
     Dosage: 81 MG
     Route: 048
  8. OMEPRAZOLE [Concomitant]
     Dosage: 20 MG
     Route: 048
  9. GEMFIBROZIL [Concomitant]
     Indication: BLOOD TRIGLYCERIDES INCREASED
     Dosage: 1200 MG
     Route: 048
  10. PROVENTIL GENTLEHALER [Concomitant]
     Route: 055
  11. OXYBUTYNIN [Concomitant]
     Dosage: 10 MG
     Route: 048
  12. POTASSIUM [Concomitant]
     Dosage: 8 MEQ
     Route: 048
  13. BUMETANIDE [Concomitant]
     Dosage: 1 MG
     Route: 048

REACTIONS (4)
  - ABDOMINAL PAIN UPPER [None]
  - BACK PAIN [None]
  - ERUCTATION [None]
  - ABDOMINAL DISCOMFORT [None]
